FAERS Safety Report 13564242 (Version 2)
Quarter: 2017Q2

REPORT INFORMATION
  Report Type: Spontaneous
  Country: IN (occurrence: IN)
  Receive Date: 20170519
  Receipt Date: 20170628
  Transmission Date: 20170830
  Serious: Yes (Other)
  Sender: FDA-Public Use
  Company Number: IN-BRISTOL-MYERS SQUIBB COMPANY-BMS-2017-043322

PATIENT
  Age: 33 Year
  Sex: Female

DRUGS (3)
  1. ABILIFY [Suspect]
     Active Substance: ARIPIPRAZOLE
     Indication: SCHIZOPHRENIA
     Route: 065
  2. RISPERIDONE. [Suspect]
     Active Substance: RISPERIDONE
     Indication: SCHIZOPHRENIA
     Route: 065
  3. AMISULPRIDE [Suspect]
     Active Substance: AMISULPRIDE
     Indication: SCHIZOPHRENIA
     Route: 065

REACTIONS (2)
  - Treatment failure [Unknown]
  - Diabetes mellitus [Recovering/Resolving]
